FAERS Safety Report 14116970 (Version 3)
Quarter: 2017Q4

REPORT INFORMATION
  Report Type: Spontaneous
  Country: JP (occurrence: JP)
  Receive Date: 20171023
  Receipt Date: 20171114
  Transmission Date: 20180321
  Serious: Yes (Hospitalization, Other)
  Sender: FDA-Public Use
  Company Number: JP-009507513-1710JPN001858J

PATIENT
  Age: 38 Year
  Sex: Female

DRUGS (3)
  1. SOVALDI [Suspect]
     Active Substance: SOFOSBUVIR
     Indication: CHRONIC HEPATITIS C
     Dosage: 1 DF, A DAY
     Route: 048
     Dates: start: 20170817
  2. SOVALDI [Suspect]
     Active Substance: SOFOSBUVIR
     Dosage: 1 DF, UNK
     Route: 048
  3. REBETOL [Suspect]
     Active Substance: RIBAVIRIN
     Indication: CHRONIC HEPATITIS C
     Dosage: 600 MG, A DAY
     Route: 048
     Dates: start: 20170817

REACTIONS (1)
  - Jaw fracture [Not Recovered/Not Resolved]
